FAERS Safety Report 6097430-1 (Version None)
Quarter: 2009Q1

REPORT INFORMATION
  Report Type: 
  Country: None (occurrence: None)
  Receive Date: 20090227
  Receipt Date: 20080505
  Transmission Date: 20090719
  Serious: No
  Sender: FDA-Public Use
  Company Number: A0723202A

PATIENT
  Age: 20 Year
  Sex: Male
  Weight: 76.8 kg

DRUGS (1)
  1. IMITREX [Suspect]
     Indication: MIGRAINE
     Dosage: 6MG AS REQUIRED
     Route: 058
     Dates: start: 20080415, end: 20080415

REACTIONS (6)
  - AGITATION [None]
  - BURNING SENSATION [None]
  - NAUSEA [None]
  - NECK PAIN [None]
  - OROPHARYNGEAL PAIN [None]
  - RESTLESSNESS [None]
